FAERS Safety Report 13570945 (Version 1)
Quarter: 2017Q2

REPORT INFORMATION
  Report Type: Spontaneous
  Country: US (occurrence: US)
  Receive Date: 20170523
  Receipt Date: 20170523
  Transmission Date: 20170830
  Serious: No
  Sender: FDA-Public Use
  Company Number: US-TEVA-724943ACC

PATIENT
  Sex: Female

DRUGS (1)
  1. PROGESTERONE IN OIL INJ [Suspect]
     Active Substance: PROGESTERONE
     Dates: start: 20161031, end: 20161219

REACTIONS (2)
  - Rash generalised [Unknown]
  - Swelling face [Unknown]
